FAERS Safety Report 8165961-6 (Version None)
Quarter: 2012Q1

REPORT INFORMATION
  Report Type: 
  Country: None (occurrence: None)
  Receive Date: 20120227
  Receipt Date: 20111227
  Transmission Date: 20120608
  Serious: No
  Sender: FDA-Public Use
  Company Number: US-MYLANLABS-2011S1025274

PATIENT
  Age: 28 Year
  Sex: Female
  Weight: 63.5 kg

DRUGS (1)
  1. AMNESTEEM [Suspect]
     Indication: ACNE
     Route: 048
     Dates: start: 20111004, end: 20111107

REACTIONS (3)
  - HEADACHE [None]
  - MOOD ALTERED [None]
  - NAUSEA [None]
